FAERS Safety Report 16954775 (Version 1)
Quarter: 2019Q4

REPORT INFORMATION
  Report Type: Spontaneous
  Country: JP (occurrence: JP)
  Receive Date: 20191024
  Receipt Date: 20191024
  Transmission Date: 20200122
  Serious: Yes (Hospitalization, Other)
  Sender: FDA-Public Use
  Company Number: PHHY2019JP226444

PATIENT
  Age: 64 Year
  Sex: Male

DRUGS (10)
  1. SIMULECT [Suspect]
     Active Substance: BASILIXIMAB
     Indication: TRANSPLANT
     Dosage: UNK
     Route: 042
  2. CELLCEPT [Suspect]
     Active Substance: MYCOPHENOLATE MOFETIL\MYCOPHENOLATE MOFETIL HYDROCHLORIDE
     Indication: RENAL TRANSPLANT
     Dosage: UNK
     Route: 048
  3. SIMULECT [Suspect]
     Active Substance: BASILIXIMAB
     Indication: PROPHYLAXIS AGAINST TRANSPLANT REJECTION
  4. GRACEPTOR [Suspect]
     Active Substance: TACROLIMUS
     Indication: RENAL TRANSPLANT
     Dosage: UNK
     Route: 048
  5. GRACEPTOR [Suspect]
     Active Substance: TACROLIMUS
     Indication: IMMUNOSUPPRESSANT DRUG THERAPY
  6. RITUXIMAB. [Suspect]
     Active Substance: RITUXIMAB
     Indication: PROPHYLAXIS AGAINST TRANSPLANT REJECTION
     Dosage: UNK
     Route: 065
  7. RITUXIMAB. [Suspect]
     Active Substance: RITUXIMAB
     Indication: RENAL TRANSPLANT
  8. METHYLPREDNISOLONE. [Suspect]
     Active Substance: METHYLPREDNISOLONE
     Indication: IMMUNOSUPPRESSANT DRUG THERAPY
  9. CELLCEPT [Suspect]
     Active Substance: MYCOPHENOLATE MOFETIL\MYCOPHENOLATE MOFETIL HYDROCHLORIDE
     Indication: IMMUNOSUPPRESSANT DRUG THERAPY
  10. METHYLPREDNISOLONE. [Suspect]
     Active Substance: METHYLPREDNISOLONE
     Indication: RENAL TRANSPLANT
     Dosage: UNK
     Route: 048

REACTIONS (3)
  - Product use in unapproved indication [Unknown]
  - Kidney transplant rejection [Recovering/Resolving]
  - Prostate cancer [Recovered/Resolved]
